FAERS Safety Report 7201272-0 (Version None)
Quarter: 2010Q4

REPORT INFORMATION
  Report Type: 
  Country: None (occurrence: None)
  Receive Date: 20101227
  Receipt Date: 20101227
  Transmission Date: 20110411
  Serious: Yes (Other)
  Sender: FDA-Public Use
  Company Number: None

PATIENT
  Age: 58 Year
  Sex: Male
  Weight: 83.9154 kg

DRUGS (1)
  1. ALLEGRA-D 12 HOUR [Suspect]
     Indication: HYPERSENSITIVITY
     Dosage: ONE DAILY PO
     Route: 048
     Dates: start: 20101222, end: 20101223

REACTIONS (1)
  - DIARRHOEA HAEMORRHAGIC [None]
